FAERS Safety Report 6292799-7 (Version None)
Quarter: 2009Q3

REPORT INFORMATION
  Report Type: 
  Country: None (occurrence: None)
  Receive Date: 20090731
  Receipt Date: 20090722
  Transmission Date: 20100115
  Serious: Yes (Hospitalization)
  Sender: FDA-Public Use
  Company Number: HK-GENENTECH-286004

PATIENT
  Sex: Female

DRUGS (3)
  1. BEVACIZUMAB [Suspect]
     Indication: NON-SMALL CELL LUNG CANCER
     Dosage: 680 MG, Q3W
     Route: 042
     Dates: start: 20090417
  2. CARBOPLATIN [Suspect]
     Indication: NON-SMALL CELL LUNG CANCER
     Dosage: 480 MG, Q3W
     Route: 042
     Dates: start: 20090417
  3. GEMCITABINE [Suspect]
     Indication: NON-SMALL CELL LUNG CANCER
     Dosage: 1680 MG, UNK
     Route: 042
     Dates: start: 20090417, end: 20090612

REACTIONS (2)
  - ANAEMIA [None]
  - THROMBOCYTOPENIA [None]
